FAERS Safety Report 5642604-4 (Version None)
Quarter: 2008Q1

REPORT INFORMATION
  Report Type: 
  Country: None (occurrence: None)
  Receive Date: 20080228
  Receipt Date: 20080219
  Transmission Date: 20080703
  Serious: Yes (Hospitalization, Other)
  Sender: FDA-Public Use
  Company Number: GB-JNJFOC-20080204174

PATIENT
  Sex: Male
  Weight: 65 kg

DRUGS (6)
  1. REMICADE [Suspect]
     Indication: RHEUMATOID ARTHRITIS
  2. PENICILLAMINE [Concomitant]
  3. SULFASALAZINE [Concomitant]
  4. PREDNISONE TAB [Concomitant]
  5. LOSEC I.V. [Concomitant]
  6. MOBIFLEX [Concomitant]

REACTIONS (4)
  - FALL [None]
  - HEAD INJURY [None]
  - PNEUMOTHORAX [None]
  - RIB FRACTURE [None]
